FAERS Safety Report 9357912 (Version 1)
Quarter: 2013Q2

REPORT INFORMATION
  Report Type: Spontaneous
  Country: US (occurrence: None)
  Receive Date: 20130619
  Receipt Date: 20130619
  Transmission Date: 20140414
  Serious: No
  Sender: FDA-Public Use
  Company Number: None

PATIENT
  Age: 80 Year
  Sex: Female
  Weight: 70.31 kg

DRUGS (2)
  1. XARELTO [Suspect]
     Indication: ATRIAL FIBRILLATION
     Dosage: 1 PILL
     Dates: start: 20121126, end: 20130602
  2. XARELTO [Suspect]
     Indication: ANTICOAGULANT THERAPY
     Dosage: 1 PILL
     Dates: start: 20121126, end: 20130602

REACTIONS (3)
  - Pain in extremity [None]
  - Pain in extremity [None]
  - Myalgia [None]
